FAERS Safety Report 5411724-1 (Version None)
Quarter: 2007Q3

REPORT INFORMATION
  Report Type: 
  Country: None (occurrence: None)
  Receive Date: 20070813
  Receipt Date: 20070808
  Transmission Date: 20080115
  Serious: Yes (Death)
  Sender: FDA-Public Use
  Company Number: PHEH2007US10938

PATIENT
  Age: 81 Year
  Sex: Male
  Weight: 102.04 kg

DRUGS (1)
  1. GLEEVEC [Suspect]
     Dosage: 400 UNK, QD
     Route: 048
     Dates: start: 20070725, end: 20070803

REACTIONS (1)
  - RESPIRATORY FAILURE [None]
